FAERS Safety Report 4819896-4 (Version None)
Quarter: 2005Q4

REPORT INFORMATION
  Report Type: 
  Country: None (occurrence: None)
  Receive Date: 20051103
  Receipt Date: 20050714
  Transmission Date: 20060501
  Serious: Yes (Hospitalization)
  Sender: FDA-Public Use
  Company Number: US-MERCK-0507USA02047

PATIENT
  Age: 57 Year
  Sex: Female
  Weight: 55 kg

DRUGS (5)
  1. VIOXX [Suspect]
     Indication: ARTHRITIS
     Route: 048
     Dates: start: 20010201, end: 20010422
  2. CYCLOBENZAPRINE HYDROCHLORIDE [Concomitant]
     Route: 065
  3. HYDROXYZINE HYDROCHLORIDE [Concomitant]
     Indication: ANXIETY
     Route: 065
  4. HYDROXYZINE HYDROCHLORIDE [Concomitant]
     Indication: TENSION
     Route: 065
  5. PREMPRO [Concomitant]
     Indication: OESTROGEN REPLACEMENT THERAPY
     Route: 065
     Dates: start: 20010101, end: 20020101

REACTIONS (5)
  - ACUTE MYOCARDIAL INFARCTION [None]
  - BACTERIAL INFECTION [None]
  - BLOOD CHOLESTEROL INCREASED [None]
  - CHRONIC OBSTRUCTIVE PULMONARY DISEASE [None]
  - CORONARY ARTERY DISEASE [None]
